FAERS Safety Report 19695373 (Version 3)
Quarter: 2021Q4

REPORT INFORMATION
  Report Type: Other
  Country: AU (occurrence: AU)
  Receive Date: 20210813
  Receipt Date: 20211110
  Transmission Date: 20220303
  Serious: Yes (Other)
  Sender: FDA-Public Use
  Company Number: AU-HORMOSAN PHARMA GMBH-2021-14197

PATIENT
  Sex: Female
  Weight: 68 kg

DRUGS (1)
  1. ETHINYL ESTRADIOL\LEVONORGESTREL [Suspect]
     Active Substance: ETHINYL ESTRADIOL\LEVONORGESTREL
     Indication: Contraception
     Dosage: UNK
     Route: 048
     Dates: start: 20210621, end: 20210711

REACTIONS (3)
  - Pregnancy on contraceptive [Unknown]
  - Adverse event [Unknown]
  - Product substitution issue [Unknown]
